FAERS Safety Report 7448296-6 (Version None)
Quarter: 2011Q2

REPORT INFORMATION
  Report Type: 
  Country: None (occurrence: None)
  Receive Date: 20110429
  Receipt Date: 20110425
  Transmission Date: 20111010
  Serious: Yes (Other)
  Sender: FDA-Public Use
  Company Number: CHPA2011US05409

PATIENT
  Age: 78 Year
  Sex: Male
  Weight: 84.354 kg

DRUGS (6)
  1. SIMVASTATIN [Concomitant]
     Indication: BLOOD CHOLESTEROL INCREASED
     Dosage: UNK, UNK
  2. COUMADIN [Concomitant]
     Indication: ANTICOAGULANT THERAPY
     Dosage: UNK, UNK
  3. NIACIN [Concomitant]
     Dosage: 1000 MG, QD
  4. SLOW FE BROWN [Suspect]
     Indication: MINERAL SUPPLEMENTATION
     Route: 048
  5. SLOW FE BROWN [Suspect]
     Indication: HAEMORRHAGE
     Dosage: 1 DF, QD
     Route: 048
     Dates: start: 20110316
  6. LANOXIN [Concomitant]
     Dosage: UNK, UNK

REACTIONS (4)
  - HEPATIC ENZYME INCREASED [None]
  - EXPIRED DRUG ADMINISTERED [None]
  - CARDIAC PACEMAKER INSERTION [None]
  - OFF LABEL USE [None]
